FAERS Safety Report 5189922-4 (Version None)
Quarter: 2006Q4

REPORT INFORMATION
  Report Type: 
  Country: None (occurrence: None)
  Receive Date: 20061218
  Receipt Date: 20061205
  Transmission Date: 20070319
  Serious: Yes (Other)
  Sender: FDA-Public Use
  Company Number: GXKR2006AT07047

PATIENT
  Age: 47 Year
  Sex: Female
  Weight: 62 kg

DRUGS (1)
  1. PAROXAT HEXAL (NGX)(PAROXETINE) FILM-COATED TABLET, 40MG [Suspect]
     Indication: DEPRESSION
     Dosage: 40 MG, ORAL
     Route: 048
     Dates: start: 20060701, end: 20060801

REACTIONS (5)
  - FEAR [None]
  - NIGHTMARE [None]
  - PALPITATIONS [None]
  - PHARMACEUTICAL PRODUCT COMPLAINT [None]
  - POOR QUALITY SLEEP [None]
